FAERS Safety Report 23597582 (Version 2)
Quarter: 2024Q2

REPORT INFORMATION
  Report Type: Report from Study
  Country: IN (occurrence: IN)
  Receive Date: 20240305
  Receipt Date: 20240522
  Transmission Date: 20240716
  Serious: Yes (Other)
  Sender: FDA-Public Use
  Company Number: IN-002147023-NVSC2023IN275027

PATIENT
  Sex: Female

DRUGS (4)
  1. RIBOCICLIB [Suspect]
     Active Substance: RIBOCICLIB
     Indication: Full blood count
     Dosage: 600 MG, QD
     Route: 048
     Dates: start: 20220813, end: 20230609
  2. RIBOCICLIB [Suspect]
     Active Substance: RIBOCICLIB
     Indication: Renal function test abnormal
  3. RIBOCICLIB [Suspect]
     Active Substance: RIBOCICLIB
     Indication: Breast cancer
  4. ANASTROZOLE [Concomitant]
     Active Substance: ANASTROZOLE
     Indication: Product used for unknown indication
     Dosage: UNK
     Route: 065
     Dates: start: 202207

REACTIONS (11)
  - White blood cell count decreased [Unknown]
  - Neutropenia [Unknown]
  - Alopecia [Unknown]
  - Lymphoedema [Unknown]
  - Epistaxis [Unknown]
  - Pyrexia [Unknown]
  - Haemoptysis [Unknown]
  - Neck pain [Unknown]
  - Chest pain [Unknown]
  - Muscle contractions involuntary [Unknown]
  - Product use in unapproved indication [Unknown]
